FAERS Safety Report 8722308 (Version 2)
Quarter: 2013Q1

REPORT INFORMATION
  Report Type: Report from Study
  Country: JP (occurrence: JP)
  Receive Date: 20120814
  Receipt Date: 20130213
  Transmission Date: 20140127
  Serious: No
  Sender: FDA-Public Use
  Company Number: JP-009507513-1208JPN003580

PATIENT
  Age: 60 Year
  Sex: Female
  Weight: 65 kg

DRUGS (14)
  1. PEGINTRON [Suspect]
     Indication: CHRONIC HEPATITIS C
     Dosage: 1.5 MICROGRAM PER KILOGRAM, QW
     Route: 058
     Dates: start: 20120207, end: 20120724
  2. REBETOL [Suspect]
     Indication: CHRONIC HEPATITIS C
     Dosage: 400 MG, QD
     Route: 048
     Dates: start: 20120207, end: 20120214
  3. REBETOL [Suspect]
     Dosage: 200 MG, QD
     Route: 048
     Dates: start: 20120215, end: 20120221
  4. REBETOL [Suspect]
     Dosage: 400 MG, QD
     Route: 048
     Dates: start: 20120222, end: 20120228
  5. REBETOL [Suspect]
     Dosage: 600 MG, QD
     Route: 048
     Dates: start: 20120229, end: 20120327
  6. REBETOL [Suspect]
     Dosage: 500 MG, QD
     Route: 048
     Dates: start: 20120328, end: 20120710
  7. REBETOL [Suspect]
     Dosage: 600 MG, QD
     Route: 048
     Dates: start: 20120711, end: 20120724
  8. TELAVIC [Suspect]
     Indication: CHRONIC HEPATITIS C
     Dosage: 1500 MG, QD
     Route: 048
     Dates: start: 20120207, end: 20120501
  9. ADALAT CR [Concomitant]
     Indication: HYPERTENSION
     Dosage: 20 MG, QD, FORMULATION POR
     Route: 048
  10. DIOVAN [Concomitant]
     Indication: HYPERTENSION
     Dosage: 80 MG, QD, FORMULATION POR
     Route: 048
  11. VIVIANT [Concomitant]
     Indication: OSTEOPOROSIS
     Dosage: 20 MG, QD, FORMULATION POR
     Route: 048
     Dates: start: 20120207, end: 20120724
  12. XYZAL [Concomitant]
     Indication: PROPHYLAXIS
     Dosage: 5 MG, QD
     Route: 048
     Dates: start: 20120207, end: 20120724
  13. SELBEX [Concomitant]
     Indication: PROPHYLAXIS
     Dosage: 1.5 G, QD, FORMULATION FGR
     Route: 048
     Dates: start: 20120207, end: 20120724
  14. MAGMITT [Concomitant]
     Indication: CONSTIPATION
     Dosage: 1000 MG, QD, FORMULATION POR
     Route: 048
     Dates: start: 20120209

REACTIONS (6)
  - Anaemia [Recovering/Resolving]
  - Pyrexia [None]
  - White blood cell count decreased [None]
  - Platelet count decreased [None]
  - Hyperuricaemia [None]
  - Dyspepsia [None]
